FAERS Safety Report 14740131 (Version 1)
Quarter: 2018Q2

REPORT INFORMATION
  Report Type: Spontaneous
  Country: CH (occurrence: CH)
  Receive Date: 20180410
  Receipt Date: 20180410
  Transmission Date: 20180711
  Serious: Yes (Death)
  Sender: FDA-Public Use
  Company Number: CH-ACTELION-A-CH2018-170237

PATIENT
  Age: 36 Month
  Sex: Female

DRUGS (2)
  1. ZAVESCA [Suspect]
     Active Substance: MIGLUSTAT
     Indication: GAUCHER^S DISEASE TYPE II
     Route: 048
  2. IMIGLUCERASE [Concomitant]
     Active Substance: IMIGLUCERASE
     Indication: GAUCHER^S DISEASE TYPE II

REACTIONS (1)
  - Death [Fatal]
